FAERS Safety Report 8952864 (Version 1)
Quarter: 2012Q4

REPORT INFORMATION
  Report Type: 
  Country: CA (occurrence: CA)
  Receive Date: 20121203
  Receipt Date: 20121203
  Transmission Date: 20130627
  Serious: Yes (Other)
  Sender: FDA-Public Use
  Company Number: CHPA2012CA024090

PATIENT
  Age: 45 Year
  Sex: Female

DRUGS (1)
  1. NEOCITRAN NIGHTTIME TOTAL SYMPTOM RELIEF [Suspect]
     Indication: INSOMNIA
     Dosage: 1 DF, Unk
     Route: 048
     Dates: start: 1979, end: 20121118

REACTIONS (5)
  - Thyroid disorder [Not Recovered/Not Resolved]
  - Influenza [Recovered/Resolved]
  - Therapeutic response unexpected [Unknown]
  - Off label use [Unknown]
  - Therapeutic response decreased [Unknown]
